FAERS Safety Report 12978091 (Version 3)
Quarter: 2017Q1

REPORT INFORMATION
  Report Type: Spontaneous
  Country: PR (occurrence: PR)
  Receive Date: 20161128
  Receipt Date: 20170124
  Transmission Date: 20170428
  Serious: Yes (Hospitalization)
  Sender: FDA-Public Use
  Company Number: PR-PFIZER INC-2016536765

PATIENT
  Age: 64 Year
  Sex: Male
  Weight: 79 kg

DRUGS (1)
  1. SUTENT [Suspect]
     Active Substance: SUNITINIB MALATE
     Indication: RENAL CANCER
     Dosage: 50 MG, DAILY (DAILY X 28 DAYS)
     Route: 048
     Dates: start: 20160927

REACTIONS (4)
  - Oesophageal ulcer [Unknown]
  - Dyspepsia [Unknown]
  - Haemoglobin decreased [Not Recovered/Not Resolved]
  - Neoplasm progression [Unknown]
